FAERS Safety Report 20115503 (Version 1)
Quarter: 2021Q4

REPORT INFORMATION
  Report Type: Spontaneous
  Country: US (occurrence: US)
  Receive Date: 20211126
  Receipt Date: 20211126
  Transmission Date: 20220303
  Serious: Yes (Hospitalization)
  Sender: FDA-Public Use
  Company Number: US-AUROBINDO-AUR-APL-2021-048567

PATIENT
  Age: 65 Year
  Sex: Male

DRUGS (6)
  1. CYCLOPHOSPHAMIDE [Suspect]
     Active Substance: CYCLOPHOSPHAMIDE
     Indication: Acquired haemophilia
     Dosage: 2 MILLIGRAM/KILOGRAM, ONCE A DAY (FOR 5 DAYS)
     Route: 042
  2. EPTACOG ALFA [Suspect]
     Active Substance: COAGULATION FACTOR VIIA RECOMBINANT HUMAN
     Indication: Acquired haemophilia
     Dosage: UNK
     Route: 065
  3. DEXAMETHASONE [Concomitant]
     Active Substance: DEXAMETHASONE
     Indication: Acquired haemophilia
     Dosage: UNK (FOR 4 DAYS)
     Route: 065
  4. IMMUNE GLOBULIN [Concomitant]
     Indication: Acquired haemophilia
     Dosage: 1 GRAM PER KILOGRAM, ONCE A DAY
     Route: 042
  5. PREDNISONE [Concomitant]
     Active Substance: PREDNISONE
     Indication: Acquired haemophilia
     Dosage: 1 MILLIGRAM/KILOGRAM, ONCE A DAY
     Route: 065
  6. RITUXIMAB [Concomitant]
     Active Substance: RITUXIMAB
     Indication: Acquired haemophilia
     Dosage: 375 MILLIGRAM/SQ. METER (FOR FOUR DOSES)
     Route: 065

REACTIONS (2)
  - Haematoma [Unknown]
  - Product use in unapproved indication [Unknown]
